FAERS Safety Report 9761662 (Version 1)
Quarter: 2013Q4

REPORT INFORMATION
  Report Type: Spontaneous
  Country: SE (occurrence: SE)
  Receive Date: 20131216
  Receipt Date: 20131216
  Transmission Date: 20140711
  Serious: Yes (Other)
  Sender: FDA-Public Use
  Company Number: SE-ACTAVIS-2013-22622

PATIENT
  Sex: Female

DRUGS (2)
  1. LEVETIRACETAM ACTAVIS [Suspect]
     Indication: EPILEPSY
     Dosage: 500 MG, 1 TAB EACH MORNING AND 1 TAB EACH EVENING
     Route: 065
     Dates: start: 2003
  2. MAGNESIUM [Concomitant]
     Indication: PRODUCT USED FOR UNKNOWN INDICATION
     Dosage: UNK

REACTIONS (5)
  - Convulsion [Unknown]
  - Dysuria [Unknown]
  - Syncope [Unknown]
  - Dizziness [Unknown]
  - Altered state of consciousness [Unknown]
